FAERS Safety Report 4643726-7 (Version None)
Quarter: 2005Q2

REPORT INFORMATION
  Report Type: 
  Country: None (occurrence: None)
  Receive Date: 20050425
  Receipt Date: 20050314
  Transmission Date: 20051028
  Serious: Yes (Death, Other)
  Sender: FDA-Public Use
  Company Number: ES-BRISTOL-MYERS SQUIBB COMPANY-12897039

PATIENT
  Age: 43 Year
  Sex: Female

DRUGS (2)
  1. CETUXIMAB [Suspect]
     Indication: COLORECTAL CANCER METASTATIC
     Dosage: 1ST CETUXIMAB INFUSION ADMINISTERED ON 03-MAR-2005 (250 MG/M2). CETUXIMAB DISCONTINUED.
     Route: 042
     Dates: start: 20050312, end: 20050312
  2. IRINOTECAN HCL [Suspect]
     Indication: COLORECTAL CANCER METASTATIC
     Dosage: 1ST + MOST RECENT IRINOTECAN INFUSION ADMINISTERED 03-MAR-2005 (350 MG/M2). IRINOTECAN DISCONTINUED.
     Route: 042
     Dates: start: 20050303, end: 20050303

REACTIONS (3)
  - ASTHENIA [None]
  - LYMPHANGIOSIS CARCINOMATOSA [None]
  - RESPIRATORY FAILURE [None]
